FAERS Safety Report 12379180 (Version 1)
Quarter: 2016Q2

REPORT INFORMATION
  Report Type: Spontaneous
  Country: DE (occurrence: DE)
  Receive Date: 20160517
  Receipt Date: 20160517
  Transmission Date: 20160815
  Serious: Yes (Other)
  Sender: FDA-Public Use
  Company Number: PHHY2016DE062541

PATIENT
  Age: 32 Year
  Sex: Male

DRUGS (3)
  1. METOPROLOL. [Concomitant]
     Active Substance: METOPROLOL
     Indication: AORTIC VALVE INCOMPETENCE
     Dosage: UNK
     Route: 065
  2. CARBAMAZEPINE. [Suspect]
     Active Substance: CARBAMAZEPINE
     Indication: DYSKINESIA
     Dosage: 300 MG, QD
     Route: 065
  3. LERCANIDIPINE [Suspect]
     Active Substance: LERCANIDIPINE
     Indication: AORTIC VALVE INCOMPETENCE
     Dosage: UNK
     Route: 065

REACTIONS (4)
  - Teratospermia [Recovered/Resolved]
  - Asthenospermia [Recovered/Resolved]
  - Blood prolactin increased [Recovered/Resolved]
  - Product use issue [Unknown]
